FAERS Safety Report 4322191-3 (Version None)
Quarter: 2004Q1

REPORT INFORMATION
  Report Type: 
  Country: None (occurrence: None)
  Receive Date: 20040319
  Receipt Date: 20040309
  Transmission Date: 20041129
  Serious: Yes (Life-Threatening, Hospitalization)
  Sender: FDA-Public Use
  Company Number: 2004-00986

PATIENT
  Age: 70 Year
  Sex: Female
  Weight: 59 kg

DRUGS (8)
  1. BISOPROLOL FUMARATE AND HYDROCHLOROTHIAZIDE [Suspect]
     Indication: HYPERTENSION
     Dosage: 1.5 TABLET, DAILY, ORAL; SEE IMAGE
     Route: 048
     Dates: start: 20031201, end: 20020124
  2. BISOPROLOL FUMARATE AND HYDROCHLOROTHIAZIDE [Suspect]
     Indication: HYPERTENSION
     Dosage: 1.5 TABLET, DAILY, ORAL; SEE IMAGE
     Route: 048
     Dates: start: 20030901, end: 20031201
  3. FOSAMAX [Concomitant]
  4. LIPITOR [Concomitant]
  5. CALCIUM [Concomitant]
  6. ASPIRIN [Concomitant]
  7. LISINOPRIL [Concomitant]
  8. LOPRESSOR [Concomitant]

REACTIONS (2)
  - BLOOD PRESSURE INCREASED [None]
  - INAPPROPRIATE ANTIDIURETIC HORMONE SECRETION [None]
